FAERS Safety Report 5398182-0 (Version None)
Quarter: 2007Q3

REPORT INFORMATION
  Report Type: 
  Country: None (occurrence: None)
  Receive Date: 20070726
  Receipt Date: 20070717
  Transmission Date: 20080115
  Serious: Yes (Other)
  Sender: FDA-Public Use
  Company Number: FR-PFIZER INC-2007049678

PATIENT
  Sex: Male
  Weight: 65 kg

DRUGS (6)
  1. LYRICA [Suspect]
     Indication: POLYNEUROPATHY
     Route: 048
  2. LYRICA [Suspect]
     Indication: NEURALGIA
  3. NEURONTIN [Suspect]
  4. LAROXYL [Concomitant]
     Dates: start: 20050101
  5. RIVOTRIL [Concomitant]
  6. TRAMADOL HCL [Concomitant]

REACTIONS (4)
  - DERMATITIS ALLERGIC [None]
  - DRUG INEFFECTIVE [None]
  - FOLLICULITIS [None]
  - PARAESTHESIA [None]
